FAERS Safety Report 4665688-9 (Version None)
Quarter: 2005Q2

REPORT INFORMATION
  Report Type: 
  Country: None (occurrence: None)
  Receive Date: 20050519
  Receipt Date: 20050506
  Transmission Date: 20051028
  Serious: Yes (Other)
  Sender: FDA-Public Use
  Company Number: AU-NOVOPROD-243990

PATIENT
  Age: 64 Year
  Sex: Female

DRUGS (2)
  1. ACTRAPID [Suspect]
     Indication: ILL-DEFINED DISORDER
  2. PROTAPHANE [Suspect]
     Indication: ILL-DEFINED DISORDER

REACTIONS (1)
  - TRIPLE VESSEL BYPASS GRAFT [None]
